FAERS Safety Report 8026565-9 (Version None)
Quarter: 2012Q1

REPORT INFORMATION
  Report Type: 
  Country: None (occurrence: None)
  Receive Date: 20120106
  Receipt Date: 20120104
  Transmission Date: 20120608
  Serious: Yes (Hospitalization)
  Sender: FDA-Public Use
  Company Number: US-BIOGENIDEC-2011BI048008

PATIENT
  Age: 56 Year
  Sex: Female

DRUGS (13)
  1. FLONASE [Concomitant]
  2. RED RICE YEAST [Concomitant]
  3. VITAMIN D [Concomitant]
  4. MAGNESIUM [Concomitant]
  5. NORTRIPTYLINE HCL [Concomitant]
  6. NIFEDIAC [Concomitant]
  7. IBUPROFEN [Concomitant]
  8. NIACIN [Concomitant]
  9. NEURONTIN [Concomitant]
  10. HYDROCHLOROTHIAZIDE [Concomitant]
  11. ALPHA LIPOIC ACID [Concomitant]
  12. LACTOBACILLUS [Concomitant]
  13. TYSABRI [Suspect]
     Indication: MULTIPLE SCLEROSIS
     Route: 042
     Dates: start: 20070627, end: 20111117

REACTIONS (2)
  - FUNGAL INFECTION [None]
  - PROGRESSIVE MULTIFOCAL LEUKOENCEPHALOPATHY [None]
